FAERS Safety Report 9412016 (Version 2)
Quarter: 2013Q3

REPORT INFORMATION
  Report Type: Spontaneous
  Country: US (occurrence: US)
  Receive Date: 20130722
  Receipt Date: 20130729
  Transmission Date: 20140515
  Serious: Yes (Other)
  Sender: FDA-Public Use
  Company Number: US-JNJFOC-20130706051

PATIENT
  Age: 28 Year
  Sex: Female
  Weight: 56.7 kg

DRUGS (2)
  1. NEOSPORIN PLUS PAIN RELIEF CREAM [Suspect]
     Indication: WOUND
     Dosage: ENOUGH TO COVER AN INCH ON FACE
     Route: 061
  2. HYDROGEN PEROXIDE [Interacting]
     Indication: WOUND
     Route: 065

REACTIONS (4)
  - Chemical injury [Recovering/Resolving]
  - Drug interaction [Unknown]
  - Frustration [Unknown]
  - Fear [Unknown]
